FAERS Safety Report 4862199-2 (Version None)
Quarter: 2005Q4

REPORT INFORMATION
  Report Type: 
  Country: None (occurrence: None)
  Receive Date: 20051221
  Receipt Date: 20051213
  Transmission Date: 20060501
  Serious: Yes (Hospitalization, Other)
  Sender: FDA-Public Use
  Company Number: GB-JNJFOC-20051203500

PATIENT
  Sex: Female
  Weight: 76 kg

DRUGS (12)
  1. REMICADE [Suspect]
     Indication: DRUG USE FOR UNKNOWN INDICATION
     Route: 042
  2. METHOTREXATE [Concomitant]
  3. PREDNISOLONE [Concomitant]
  4. BENDROFLUAZIDE [Concomitant]
  5. CALCICHEW [Concomitant]
  6. ENALAPRIL [Concomitant]
  7. FOLIC ACID [Concomitant]
  8. GAVISCON [Concomitant]
  9. GAVISCON [Concomitant]
  10. PREMIQUE [Concomitant]
  11. PREMIQUE [Concomitant]
  12. VISCOTEARS [Concomitant]

REACTIONS (1)
  - BREAST CANCER [None]
